FAERS Safety Report 7091956-X (Version None)
Quarter: 2010Q4

REPORT INFORMATION
  Report Type: 
  Country: None (occurrence: None)
  Receive Date: 20101109
  Receipt Date: 20101103
  Transmission Date: 20110411
  Serious: Yes (Other)
  Sender: FDA-Public Use
  Company Number: US-PFIZER INC-2010140320

PATIENT
  Sex: Male

DRUGS (3)
  1. VIAGRA [Suspect]
     Indication: ERECTILE DYSFUNCTION
     Dosage: 50 MG, AS NEEDED
     Route: 048
  2. KLONOPIN [Concomitant]
     Indication: ANXIETY
     Dosage: 0.5 MG, 2X/DAY
  3. KLONOPIN [Concomitant]
     Indication: PANIC DISORDER

REACTIONS (4)
  - ANXIETY [None]
  - CYANOPSIA [None]
  - PANIC ATTACK [None]
  - VISUAL BRIGHTNESS [None]
